FAERS Safety Report 6388081-X (Version None)
Quarter: 2009Q4

REPORT INFORMATION
  Report Type: 
  Country: None (occurrence: None)
  Receive Date: 20091005
  Receipt Date: 20090903
  Transmission Date: 20100525
  Serious: No
  Sender: FDA-Public Use
  Company Number: US-BAYER-200836251NA

PATIENT
  Sex: Female

DRUGS (1)
  1. MIRENA [Suspect]
     Indication: CONTRACEPTION
     Route: 015
     Dates: start: 20080804

REACTIONS (4)
  - AMENORRHOEA [None]
  - COITAL BLEEDING [None]
  - DEVICE EXPULSION [None]
  - NAUSEA [None]
